FAERS Safety Report 17509397 (Version 1)
Quarter: 2020Q1

REPORT INFORMATION
  Report Type: Spontaneous
  Country: US (occurrence: US)
  Receive Date: 20200220
  Receipt Date: 20200220
  Transmission Date: 20200409
  Serious: Yes (Hospitalization)
  Sender: FDA-Public Use
  Company Number: None

PATIENT
  Age: 72 Year
  Sex: Male
  Weight: 97 kg

DRUGS (1)
  1. PEMBROLIZUMAB. [Suspect]
     Active Substance: PEMBROLIZUMAB

REACTIONS (8)
  - Hypokalaemia [None]
  - Asthenia [None]
  - Feeling jittery [None]
  - Nervousness [None]
  - Atrial fibrillation [None]
  - Palpitations [None]
  - Blood pressure increased [None]
  - Acute myeloid leukaemia [None]

NARRATIVE: CASE EVENT DATE: 20200219
